FAERS Safety Report 8008019-9 (Version None)
Quarter: 2011Q4

REPORT INFORMATION
  Report Type: 
  Country: None (occurrence: None)
  Receive Date: 20111227
  Receipt Date: 20111215
  Transmission Date: 20120403
  Serious: Yes (Hospitalization, Other)
  Sender: FDA-Public Use
  Company Number: PHEH2011US07133

PATIENT
  Sex: Female

DRUGS (20)
  1. NEURONTIN [Concomitant]
     Dosage: 100 MG, UNK
  2. NITROFURANTOIN [Concomitant]
     Dosage: 50 MG, UNK
  3. LORAZEPAM [Concomitant]
     Dosage: 0.5 MG, UNK
  4. BETHANECHOL [Concomitant]
     Dosage: 5 MG, UNK
  5. MULTI-VITAMIN [Concomitant]
     Dosage: UNK UKN, UNK
  6. VITAMIN D [Concomitant]
     Dosage: 400 MG, UNK
  7. NEXIUM [Concomitant]
     Dosage: 20 MG, UNK
  8. AVONEX [Suspect]
     Dosage: UNK UKN, UNK
  9. CYMBALTA [Concomitant]
     Dosage: 20 MG, UNK
  10. BYSTOLIC [Concomitant]
     Dosage: 5 MG, UNK
  11. VICODIN [Concomitant]
     Dosage: UNK (5-500 MG)
  12. VITAMIN C [Concomitant]
     Dosage: 500 MG, UNK
  13. CITRACAL + D [Concomitant]
     Dosage: UNK UKN, UNK
  14. REBIF [Suspect]
     Dosage: 44 UKN, Q3W
  15. GILENYA [Suspect]
     Indication: MULTIPLE SCLEROSIS
     Dosage: 0.5 MG, QD
     Route: 048
  16. FAMOTIDINE [Concomitant]
     Dosage: 10 MG, UNK
  17. RITALIN [Concomitant]
     Dosage: 5 MG, UNK
  18. BACLOFEN [Concomitant]
     Dosage: 10 MG, UNK
  19. POTASSIUM [Concomitant]
     Dosage: 75 MG, UNK
  20. NITROFURANTOIN [Concomitant]

REACTIONS (4)
  - MULTIPLE SCLEROSIS RELAPSE [None]
  - INFECTION [None]
  - GALLBLADDER DISORDER [None]
  - GALLBLADDER PAIN [None]
